FAERS Safety Report 11250402 (Version 1)
Quarter: 2015Q3

REPORT INFORMATION
  Report Type: Spontaneous
  Country: US (occurrence: US)
  Receive Date: 20150708
  Receipt Date: 20150708
  Transmission Date: 20151125
  Serious: No
  Sender: FDA-Public Use
  Company Number: US-ELI_LILLY_AND_COMPANY-US200805001259

PATIENT
  Age: 84 Year
  Sex: Female

DRUGS (2)
  1. XIGRIS [Suspect]
     Active Substance: DROTRECOGIN ALFA (ACTIVATED)
     Indication: SEPSIS
     Dosage: 15 MG, EVERY HOUR
     Dates: start: 20080506, end: 20080506
  2. XIGRIS [Suspect]
     Active Substance: DROTRECOGIN ALFA (ACTIVATED)
     Dosage: 1 D/F, EVERY HOUR

REACTIONS (2)
  - Accidental overdose [Recovered/Resolved]
  - Medication error [Recovered/Resolved]

NARRATIVE: CASE EVENT DATE: 20080506
